FAERS Safety Report 18418352 (Version 1)
Quarter: 2020Q4

REPORT INFORMATION
  Report Type: Spontaneous
  Country: ES (occurrence: ES)
  Receive Date: 20201023
  Receipt Date: 20201023
  Transmission Date: 20210114
  Serious: Yes (Other)
  Sender: FDA-Public Use
  Company Number: ES-ADVANZ PHARMA-202010009445

PATIENT

DRUGS (1)
  1. ALITRETINOIN [Suspect]
     Active Substance: ALITRETINOIN
     Indication: PSORIASIS
     Dosage: CAPSULE
     Route: 048
     Dates: start: 20200706

REACTIONS (1)
  - Vertigo [Recovered/Resolved]

NARRATIVE: CASE EVENT DATE: 20200801
